FAERS Safety Report 8936642 (Version 3)
Quarter: 2013Q1

REPORT INFORMATION
  Report Type: Report from Study
  Country: GB (occurrence: GB)
  Receive Date: 20121130
  Receipt Date: 20130115
  Transmission Date: 20140127
  Serious: Yes (Hospitalization)
  Sender: FDA-Public Use
  Company Number: GB-JNJFOC-20121112322

PATIENT
  Sex: Female
  Weight: 76.7 kg

DRUGS (4)
  1. REMICADE [Suspect]
     Indication: COLITIS ULCERATIVE
     Route: 042
     Dates: start: 20110414, end: 20110414
  2. PENTASA [Concomitant]
     Indication: COLITIS
     Route: 048
  3. AZATHIOPRINE [Concomitant]
     Indication: COLITIS
     Route: 048
  4. HUMIRA [Concomitant]
     Route: 058
     Dates: start: 20121002

REACTIONS (1)
  - Sepsis [Recovered/Resolved]
